FAERS Safety Report 10271059 (Version 1)
Quarter: 2014Q1

REPORT INFORMATION
  Report Type: Spontaneous
  Country: US (occurrence: None)
  Receive Date: 20140306
  Receipt Date: 20140306
  Transmission Date: 20141002
  Serious: Yes (Hospitalization)
  Sender: FDA-Public Use
  Company Number: 163-21880-13081353

PATIENT
  Age: 73 Year
  Sex: Male

DRUGS (8)
  1. REVLIMID (LENALIDOMIDE) (5 MILLIGRAM, CAPSULES) [Suspect]
     Indication: MYELODYSPLASTIC SYNDROME
     Dosage: 5 MG, 1 IN 1 D, PO?
     Route: 048
     Dates: start: 20130531
  2. ADVAIR DISKUS (SERETIDE MITE) (UNKNOWN) [Concomitant]
  3. ALLOPURINOL (ALLOPURINOL) (UNKNOWN) [Concomitant]
  4. ASPIRIN (ACETYLSALICYLIC ACID) (UNKNOWN) (ACETYLSALICYLIC ACID) [Concomitant]
  5. CHANTIX (VARENICLINE TARTRATE) (UNKNOWN) [Concomitant]
  6. CLOBETASOL PROPIONATE (CLOBETASOL PROPIONATE) (UNKNOWN)? [Concomitant]
  7. CUTAR (COAL TAR) (UNKNOWN) [Concomitant]
  8. EPLERENONE (EPLERENONE) (UNKNOWN) [Concomitant]

REACTIONS (1)
  - Pneumonia [None]
